FAERS Safety Report 15864449 (Version 2)
Quarter: 2019Q1

REPORT INFORMATION
  Report Type: Spontaneous
  Country: US (occurrence: US)
  Receive Date: 20190124
  Receipt Date: 20190220
  Transmission Date: 20190417
  Serious: Yes (Other)
  Sender: FDA-Public Use
  Company Number: US-LUNDBECK-DKLU2059697

PATIENT
  Age: 68 Year
  Sex: Male

DRUGS (4)
  1. NORTHERA [Suspect]
     Active Substance: DROXIDOPA
     Route: 048
  2. NORTHERA [Suspect]
     Active Substance: DROXIDOPA
     Indication: ORTHOSTATIC HYPOTENSION
     Route: 048
     Dates: start: 20190104
  3. NORTHERA [Suspect]
     Active Substance: DROXIDOPA
     Route: 048
  4. NORTHERA [Suspect]
     Active Substance: DROXIDOPA
     Route: 048
     Dates: start: 20190104

REACTIONS (6)
  - Feeling abnormal [Unknown]
  - Asthenia [Recovered/Resolved]
  - Nausea [Unknown]
  - Urinary incontinence [Unknown]
  - Syncope [Recovered/Resolved]
  - Blood pressure orthostatic [Unknown]

NARRATIVE: CASE EVENT DATE: 20190110
